FAERS Safety Report 6169755-2 (Version None)
Quarter: 2009Q2

REPORT INFORMATION
  Report Type: 
  Country: None (occurrence: None)
  Receive Date: 20090428
  Receipt Date: 20090414
  Transmission Date: 20091009
  Serious: Yes (Other)
  Sender: FDA-Public Use
  Company Number: AU-ROCHE-627409

PATIENT
  Age: 30 Year
  Sex: Female

DRUGS (10)
  1. MYCOPHENOLATE MOFETIL [Suspect]
     Indication: DRUG USE FOR UNKNOWN INDICATION
     Route: 065
  2. ARANESP [Suspect]
     Indication: RENAL FAILURE CHRONIC
     Route: 058
     Dates: start: 20080211
  3. ARANESP [Suspect]
     Route: 058
     Dates: start: 20090302
  4. ARANESP [Suspect]
     Route: 058
     Dates: start: 20090311
  5. AZATHIOPRINE [Concomitant]
     Dates: start: 20080101
  6. ANTI-THYMOCYTE GLOBULIN NOS [Concomitant]
     Dates: start: 20080816, end: 20080818
  7. TACROLIMUS [Concomitant]
  8. PREDNISOLONE [Concomitant]
  9. CALCIDOL B12 [Concomitant]
     Dosage: DRUG NEMAE REPORTED AS CALCIDOL
  10. TRIMETHOPRIM + SULFAMETHOXAZOLE [Concomitant]
     Dosage: DRUG NAME REPORTED AS TRIMETHOPRIM/SULFAMETHOXAZOLE
     Dates: start: 20090105

REACTIONS (2)
  - ANAEMIA [None]
  - APLASIA PURE RED CELL [None]
